FAERS Safety Report 4513473-0 (Version None)
Quarter: 2004Q4

REPORT INFORMATION
  Report Type: 
  Country: None (occurrence: None)
  Receive Date: 20041130
  Receipt Date: 20041119
  Transmission Date: 20050328
  Serious: Yes (Hospitalization)
  Sender: FDA-Public Use
  Company Number: 200414384FR

PATIENT
  Age: 90 Year
  Sex: Female

DRUGS (7)
  1. LASILIX [Suspect]
     Indication: ESSENTIAL HYPERTENSION
     Route: 048
  2. APROVEL [Suspect]
     Indication: ESSENTIAL HYPERTENSION
     Dosage: DOSE UNIT: UNITS
     Route: 048
     Dates: end: 20040820
  3. FELDENE [Suspect]
     Indication: PAIN
     Route: 030
     Dates: start: 20040805, end: 20040820
  4. DI-ANTALVIC [Concomitant]
     Indication: PAIN
     Route: 048
     Dates: start: 20040805, end: 20040820
  5. ZYLORIC [Concomitant]
     Dosage: DOSE UNIT: UNITS
     Route: 048
     Dates: end: 20040820
  6. BETASERC [Concomitant]
     Indication: MENIERE'S DISEASE
     Route: 048
     Dates: end: 20040820
  7. OMEPRAZOLE [Concomitant]
     Route: 048

REACTIONS (4)
  - ANAEMIA [None]
  - DRUG INTERACTION [None]
  - GASTROINTESTINAL HAEMORRHAGE [None]
  - RENAL FAILURE ACUTE [None]
